FAERS Safety Report 7422239-3 (Version None)
Quarter: 2011Q2

REPORT INFORMATION
  Report Type: 
  Country: None (occurrence: None)
  Receive Date: 20110419
  Receipt Date: 20110407
  Transmission Date: 20111010
  Serious: Yes (Life-Threatening, Other)
  Sender: FDA-Public Use
  Company Number: US-BAYER-2011-031042

PATIENT

DRUGS (1)
  1. AVELOX [Suspect]
     Route: 048

REACTIONS (6)
  - ANAPHYLACTIC SHOCK [None]
  - RASH [None]
  - LIP SWELLING [None]
  - DIZZINESS [None]
  - LOSS OF CONSCIOUSNESS [None]
  - DYSPNOEA [None]
